FAERS Safety Report 14738064 (Version 1)
Quarter: 2018Q2

REPORT INFORMATION
  Report Type: Spontaneous
  Country: NL (occurrence: NL)
  Receive Date: 20180409
  Receipt Date: 20180409
  Transmission Date: 20180711
  Serious: Yes (Other)
  Sender: FDA-Public Use
  Company Number: PHHY2018NL054848

PATIENT
  Age: 35 Year
  Sex: Male

DRUGS (3)
  1. CIMETIDINE [Suspect]
     Active Substance: CIMETIDINE
     Indication: ECHINOCOCCIASIS
     Dosage: UNK
     Route: 065
  2. ALBENDAZOLE [Interacting]
     Active Substance: ALBENDAZOLE
     Indication: ECHINOCOCCIASIS
     Dosage: UNK
     Route: 065
  3. PRAZIQUANTEL. [Interacting]
     Active Substance: PRAZIQUANTEL
     Indication: ECHINOCOCCIASIS
     Dosage: UNK
     Route: 065

REACTIONS (4)
  - Off label use [Unknown]
  - Cyst rupture [Unknown]
  - Drug interaction [Unknown]
  - Product use in unapproved indication [Unknown]
